FAERS Safety Report 11102407 (Version 1)
Quarter: 2015Q2

REPORT INFORMATION
  Report Type: Spontaneous
  Country: US (occurrence: None)
  Receive Date: 20150507
  Receipt Date: 20150507
  Transmission Date: 20150821
  Serious: Yes (Other)
  Sender: FDA-Public Use
  Company Number: 2846073

PATIENT
  Age: 61 Year
  Sex: Female

DRUGS (4)
  1. KETOROLAC TROMETHAMINE INJECTION 30MG/ML (KETOROLAC TROMETAMOL) [Suspect]
     Active Substance: KETOROLAC TROMETHAMINE
     Indication: PAIN IN EXTREMITY
     Dosage: EVERY 2-3 WEEKS, INTRAMUSCULAR
     Route: 030
     Dates: start: 201411, end: 20150315
  2. KETOROLAC TROMETHAMINE INJECTION 30MG/ML (KETOROLAC TROMETAMOL) [Suspect]
     Active Substance: KETOROLAC TROMETHAMINE
     Indication: PAIN IN EXTREMITY
     Dosage: EVERY 2-3 WEEKS, INTRAMUSCULAR
     Route: 030
     Dates: start: 201411, end: 20150315
  3. KETOROLAC TROMETHAMINE INJECTION 30MG/ML (KETOROLAC TROMETAMOL) [Suspect]
     Active Substance: KETOROLAC TROMETHAMINE
     Indication: PAIN IN EXTREMITY
     Dosage: EVERY 2-3 WEEKS, INTRAMUSCULAR
     Route: 030
     Dates: start: 201411
  4. KETOROLAC TROMETHAMINE INJECTION 30MG/ML (KETOROLAC TROMETAMOL) [Suspect]
     Active Substance: KETOROLAC TROMETHAMINE
     Indication: PAIN IN EXTREMITY
     Dosage: EVERY 2-3  WEEKS, INTRAMUSCULAR
     Route: 030
     Dates: start: 201411

REACTIONS (5)
  - Drug administration error [None]
  - Asthma [None]
  - Musculoskeletal chest pain [None]
  - Wheezing [None]
  - Musculoskeletal discomfort [None]

NARRATIVE: CASE EVENT DATE: 201411
